FAERS Safety Report 4885082-5 (Version None)
Quarter: 2006Q1

REPORT INFORMATION
  Report Type: 
  Country: None (occurrence: None)
  Receive Date: 20060119
  Receipt Date: 20041206
  Transmission Date: 20060701
  Serious: Yes (Hospitalization, Other)
  Sender: FDA-Public Use
  Company Number: US-GILEAD-2004-0007820

PATIENT
  Sex: Male
  Weight: 67.192 kg

DRUGS (8)
  1. VIREAD [Suspect]
     Indication: HIV INFECTION
     Route: 048
     Dates: start: 20010521, end: 20020601
  2. VIREAD [Suspect]
     Indication: ACQUIRED IMMUNODEFICIENCY SYNDROME
  3. LOPINAVIR/RITONAVIR [Concomitant]
     Indication: HIV INFECTION
     Route: 048
     Dates: start: 20000608
  4. EPIVIR [Concomitant]
     Indication: HIV INFECTION
     Route: 048
     Dates: start: 19990919
  5. INVIRASE [Concomitant]
     Indication: HIV INFECTION
     Route: 048
     Dates: start: 20000608
  6. BACTRIM [Concomitant]
     Indication: OPPORTUNISTIC INFECTION
     Route: 048
     Dates: start: 19990901
  7. BIAXIN [Concomitant]
     Indication: OPPORTUNISTIC INFECTION
     Route: 048
     Dates: start: 19990901
  8. PRILOSEC [Concomitant]
     Indication: GASTRITIS
     Route: 048
     Dates: start: 19990101

REACTIONS (2)
  - RENAL FAILURE ACUTE [None]
  - RENAL TUBULAR NECROSIS [None]
